FAERS Safety Report 9096432 (Version 1)
Quarter: 2013Q1

REPORT INFORMATION
  Report Type: Spontaneous
  Country: FR (occurrence: None)
  Receive Date: 20130124
  Receipt Date: 20130124
  Transmission Date: 20140127
  Serious: Yes (Hospitalization)
  Sender: FDA-Public Use
  Company Number: 2013000005

PATIENT
  Age: 72 Year
  Sex: Male

DRUGS (8)
  1. ACEON (PERINDOPRIL ERBUMINE) TABLET [Suspect]
     Indication: DRESSLER^S SYNDROME
     Route: 048
     Dates: start: 20121031, end: 20121129
  2. INSPRA (EPLERENONE) [Suspect]
     Indication: DRESSLER^S SYNDROME
     Route: 048
     Dates: start: 20121102, end: 20121129
  3. KARDEGIC (ACETYLSALICYLATE LYSINE) [Concomitant]
  4. EFIENT (PRASUGREL HYDROCHLORIDE) TABLET [Concomitant]
  5. TAHOR (ATORVASTATIN CALCIUM) TABLET) [Concomitant]
  6. TAHOR (ATORVASTATIN CALCIUM) TABLET [Concomitant]
  7. PROCORALAN (IVABRADINE HYDROCHLORIDE) TABLET [Concomitant]
  8. NATISPRAY (GLYCERYL TRINITRATE) [Concomitant]

REACTIONS (2)
  - Normochromic normocytic anaemia [None]
  - Renal failure acute [None]
